FAERS Safety Report 5120240-6 (Version None)
Quarter: 2006Q3

REPORT INFORMATION
  Report Type: 
  Country: None (occurrence: None)
  Receive Date: 20060928
  Receipt Date: 20060522
  Transmission Date: 20061208
  Serious: Yes (Other)
  Sender: FDA-Public Use
  Company Number: 2006112950

PATIENT
  Age: 56 Year
  Sex: Female

DRUGS (7)
  1. ZYRTEC [Suspect]
     Indication: RHINITIS PERENNIAL
     Dosage: 10 MG (DAILY), ORAL
     Route: 048
  2. EUTIROX (LEVOTHYROXINE) [Concomitant]
  3. HEPARIN-FRACTION, CALCIUM SALT (HEPARIN-FRACTION, CALCIUM SALT) [Concomitant]
  4. ALL OTHER THERAPEUTIC PRODUCTS (ALL OTHER THERAPEUTIC PRODUCTS) [Concomitant]
  5. AMITRIPTYLINE HCL [Concomitant]
  6. CHLORDIAZEPOXIDE [Concomitant]
  7. CORTICOSTEROIDS (CORTICOSTEROIDS) [Concomitant]

REACTIONS (2)
  - EOSINOPHIL PERCENTAGE INCREASED [None]
  - LEUKOPENIA [None]
